FAERS Safety Report 7161971-6 (Version None)
Quarter: 2010Q4

REPORT INFORMATION
  Report Type: 
  Country: None (occurrence: None)
  Receive Date: 20101215
  Receipt Date: 20100730
  Transmission Date: 20110411
  Serious: Yes (Other)
  Sender: FDA-Public Use
  Company Number: JP-PFIZER INC-2010087371

PATIENT
  Age: 70 Year
  Sex: Female

DRUGS (6)
  1. LYRICA [Suspect]
     Indication: POST HERPETIC NEURALGIA
     Dosage: UNK
     Route: 048
     Dates: start: 20100705, end: 20100710
  2. CRESTOR [Concomitant]
     Route: 048
  3. ALLEGRA [Concomitant]
     Route: 048
  4. REBAMIPIDE [Concomitant]
     Route: 048
  5. KAKKON-TO [Concomitant]
     Route: 048
  6. MERISLON [Concomitant]
     Route: 048

REACTIONS (2)
  - EYELID PTOSIS [None]
  - VIITH NERVE PARALYSIS [None]
